FAERS Safety Report 22274550 (Version 1)
Quarter: 2023Q2

REPORT INFORMATION
  Report Type: Spontaneous
  Country: MX (occurrence: MX)
  Receive Date: 20230502
  Receipt Date: 20230502
  Transmission Date: 20230721
  Serious: Yes (Other)
  Sender: FDA-Public Use
  Company Number: MX-MERIDIAN MEDICAL TECHNOLOGIES, LLC-2023MMT00010

PATIENT
  Age: 8 Year
  Sex: Female

DRUGS (8)
  1. MIDAZOLAM [Suspect]
     Active Substance: MIDAZOLAM
  2. PROPOFOL [Suspect]
     Active Substance: PROPOFOL
  3. NATURAL LATEX RUBBER [Suspect]
     Active Substance: NATURAL LATEX RUBBER
  4. CEFTRIAXONE [Concomitant]
     Active Substance: CEFTRIAXONE
  5. FENTANYL [Concomitant]
     Active Substance: FENTANYL
  6. LIDOCAINE [Concomitant]
     Active Substance: LIDOCAINE
  7. ROCURONIUM [Concomitant]
     Active Substance: ROCURONIUM BROMIDE
  8. ONDANSETRON [Concomitant]
     Active Substance: ONDANSETRON

REACTIONS (1)
  - Anaphylactic reaction [Recovered/Resolved]
